FAERS Safety Report 5008394-3 (Version None)
Quarter: 2006Q1

REPORT INFORMATION
  Report Type: 
  Country: None (occurrence: None)
  Receive Date: 20060331
  Receipt Date: 20050914
  Transmission Date: 20060701
  Serious: Yes (Hospitalization)
  Sender: FDA-Public Use
  Company Number: US150271

PATIENT
  Age: 70 Year
  Sex: Female

DRUGS (4)
  1. NEULASTA [Suspect]
     Indication: CHEMOTHERAPY
     Dates: start: 20050701
  2. DOXORUBICIN HYDROCHLORIDE [Concomitant]
  3. CYCLOPHOSPHAMIDE [Concomitant]
  4. DOCETAXEL [Concomitant]

REACTIONS (4)
  - CATHETER RELATED INFECTION [None]
  - CLOSTRIDIAL INFECTION [None]
  - FEBRILE NEUTROPENIA [None]
  - VENTRICULAR TACHYCARDIA [None]
